FAERS Safety Report 8615827-X (Version None)
Quarter: 2012Q3

REPORT INFORMATION
  Report Type: 
  Country: None (occurrence: None)
  Receive Date: 20120823
  Receipt Date: 20120817
  Transmission Date: 20120928
  Serious: Yes (Other)
  Sender: FDA-Public Use
  Company Number: PHHY2012BR072219

PATIENT
  Sex: Male

DRUGS (1)
  1. OMNITROPE [Suspect]
     Dosage: 0.8 MG, QD
     Route: 058
     Dates: start: 20120201

REACTIONS (4)
  - PYREXIA [None]
  - PROSTATIC DISORDER [None]
  - INFLUENZA [None]
  - OROPHARYNGEAL PAIN [None]
